FAERS Safety Report 7287515-6 (Version None)
Quarter: 2011Q1

REPORT INFORMATION
  Report Type: 
  Country: None (occurrence: None)
  Receive Date: 20110211
  Receipt Date: 20101228
  Transmission Date: 20110831
  Serious: Yes (Hospitalization)
  Sender: FDA-Public Use
  Company Number: US-BAYER-201020840NA

PATIENT
  Sex: Female

DRUGS (3)
  1. LOPID [Concomitant]
     Indication: BLOOD TRIGLYCERIDES INCREASED
     Dosage: 600 MG, BID
  2. YAZ [Suspect]
     Indication: PRODUCT USED FOR UNKNOWN INDICATION
     Dosage: AS USED DOSE: UNK
     Route: 048
     Dates: start: 20070501, end: 20080214
  3. MULTI-VITAMIN [Concomitant]
     Dosage: UNK UNK, QD

REACTIONS (7)
  - VOMITING [None]
  - GALLBLADDER DISORDER [None]
  - CHOLELITHIASIS [None]
  - PANCREATITIS ACUTE [None]
  - BILIARY DYSKINESIA [None]
  - NAUSEA [None]
  - ABDOMINAL PAIN [None]
